FAERS Safety Report 9437382 (Version 1)
Quarter: 2013Q3

REPORT INFORMATION
  Report Type: Report from Study
  Country: US (occurrence: US)
  Receive Date: 20130802
  Receipt Date: 20130802
  Transmission Date: 20140515
  Serious: Yes (Hospitalization, Other)
  Sender: FDA-Public Use
  Company Number: US-US-EMD SERONO, INC.-7226886

PATIENT
  Age: 43 Year
  Sex: Female

DRUGS (4)
  1. REBIF [Suspect]
     Indication: MULTIPLE SCLEROSIS
     Route: 057
     Dates: start: 20070101, end: 2011
  2. REBIF [Suspect]
  3. VALIUM                             /00017001/ [Concomitant]
     Indication: PRODUCT USED FOR UNKNOWN INDICATION
  4. PEPCID                             /00706001/ [Concomitant]
     Indication: PRODUCT USED FOR UNKNOWN INDICATION

REACTIONS (8)
  - Blood pressure decreased [Unknown]
  - Myocardial infarction [Not Recovered/Not Resolved]
  - Abdominal abscess [Recovered/Resolved]
  - Rotator cuff syndrome [Unknown]
  - Contusion [Unknown]
  - Scar [Unknown]
  - Nodule [Not Recovered/Not Resolved]
  - Injection site reaction [Unknown]
